FAERS Safety Report 9148834 (Version 2)
Quarter: 2013Q2

REPORT INFORMATION
  Report Type: Spontaneous
  Country: US (occurrence: US)
  Receive Date: 20130308
  Receipt Date: 20130419
  Transmission Date: 20140414
  Serious: Yes (Death, Hospitalization, Congenital Anomaly)
  Sender: FDA-Public Use
  Company Number: US-JNJFOC-20130302206

PATIENT
  Age: 0 Year
  Sex: Male

DRUGS (6)
  1. TOPAMAX [Suspect]
     Indication: FOETAL EXPOSURE DURING PREGNANCY
     Route: 064
     Dates: start: 2007
  2. DEPAKOTE [Suspect]
     Indication: FOETAL EXPOSURE DURING PREGNANCY
     Route: 064
  3. VALPROIC ACID [Suspect]
     Indication: FOETAL EXPOSURE DURING PREGNANCY
     Route: 064
  4. VALPROIC ACID [Suspect]
     Indication: FOETAL EXPOSURE DURING PREGNANCY
     Route: 064
  5. PRENATAL VITAMINS [Concomitant]
     Indication: FOETAL EXPOSURE DURING PREGNANCY
     Route: 064
  6. FOLATE [Concomitant]
     Indication: FOETAL EXPOSURE DURING PREGNANCY
     Route: 064

REACTIONS (32)
  - Lung disorder [Fatal]
  - Lung disorder [Fatal]
  - Premature baby [Not Recovered/Not Resolved]
  - Pleural effusion [Unknown]
  - Pancytopenia [Unknown]
  - Tracheomalacia [Unknown]
  - Retinopathy of prematurity [Unknown]
  - Pyelocaliectasis [Unknown]
  - Neonatal respiratory distress syndrome [Unknown]
  - Patent ductus arteriosus [Recovering/Resolving]
  - Renal failure [Unknown]
  - Visual impairment [Unknown]
  - Sepsis [Unknown]
  - Muscle contracture [Unknown]
  - Tricuspid valve incompetence [Unknown]
  - Intraventricular haemorrhage [Unknown]
  - Gastrooesophageal reflux disease [Unknown]
  - Congenital hand malformation [Unknown]
  - Talipes [Unknown]
  - Hypothyroidism [Unknown]
  - Hypertonia [Unknown]
  - Cellulitis [Unknown]
  - Hyperlipidaemia [Unknown]
  - Respiratory failure [Unknown]
  - Electrolyte imbalance [Unknown]
  - Pneumothorax [Unknown]
  - Strabismus [Unknown]
  - Skin disorder [Unknown]
  - Blood parathyroid hormone increased [Unknown]
  - Adrenal insufficiency [Unknown]
  - Pneumonia [Unknown]
  - Hydrocephalus [Unknown]
